FAERS Safety Report 5588775-X (Version None)
Quarter: 2008Q1

REPORT INFORMATION
  Report Type: 
  Country: None (occurrence: None)
  Receive Date: 20080111
  Receipt Date: 20071231
  Transmission Date: 20080703
  Serious: Yes (Life-Threatening, Hospitalization)
  Sender: FDA-Public Use
  Company Number: B0501327A

PATIENT
  Age: 67 Year
  Sex: Male

DRUGS (3)
  1. ALKERAN [Suspect]
     Dates: start: 20070723, end: 20070930
  2. THALIDOMIDE [Suspect]
     Route: 048
     Dates: start: 20070723, end: 20070930
  3. DECTANCYL [Concomitant]
     Route: 048
     Dates: start: 20070723, end: 20070930

REACTIONS (1)
  - PULMONARY EMBOLISM [None]
